FAERS Safety Report 8423958-2 (Version None)
Quarter: 2012Q2

REPORT INFORMATION
  Report Type: 
  Country: None (occurrence: None)
  Receive Date: 20120608
  Receipt Date: 20120606
  Transmission Date: 20120825
  Serious: No
  Sender: FDA-Public Use
  Company Number: US-PFIZER INC-2012137221

PATIENT
  Sex: Female
  Weight: 68.03 kg

DRUGS (4)
  1. CELEBREX [Suspect]
     Indication: MUSCULOSKELETAL PAIN
     Dosage: 200 MG, ONCE
     Dates: start: 20120604, end: 20120604
  2. CELEBREX [Suspect]
     Indication: BACK PAIN
  3. LEXAPRO [Concomitant]
     Indication: SLEEP DISORDER
     Dosage: 15 MG, DAILY
  4. LEVOTHYROXINE [Concomitant]
     Indication: HYPOTHYROIDISM
     Dosage: 0.075 MG, DAILY

REACTIONS (1)
  - INFLUENZA LIKE ILLNESS [None]
